FAERS Safety Report 21213142 (Version 1)
Quarter: 2022Q3

REPORT INFORMATION
  Report Type: Spontaneous
  Country: US (occurrence: US)
  Receive Date: 20220815
  Receipt Date: 20220815
  Transmission Date: 20221026
  Serious: Yes (Death)
  Sender: FDA-Public Use
  Company Number: US-MYLANLABS-2022M1084240

PATIENT
  Age: 8 Month
  Sex: Male

DRUGS (16)
  1. TOPOTECAN [Suspect]
     Active Substance: TOPOTECAN HYDROCHLORIDE
     Indication: Acute myeloid leukaemia
     Dosage: UNK
     Route: 065
  2. TOPOTECAN [Suspect]
     Active Substance: TOPOTECAN HYDROCHLORIDE
     Indication: Precursor T-lymphoblastic lymphoma/leukaemia
  3. VINORELBINE [Suspect]
     Active Substance: VINORELBINE TARTRATE
     Indication: Acute myeloid leukaemia
     Dosage: UNK
     Route: 065
  4. VINORELBINE [Suspect]
     Active Substance: VINORELBINE TARTRATE
     Indication: Precursor T-lymphoblastic lymphoma/leukaemia
  5. CLOFARABINE [Suspect]
     Active Substance: CLOFARABINE
     Indication: Acute myeloid leukaemia
     Dosage: UNK
     Route: 065
  6. CLOFARABINE [Suspect]
     Active Substance: CLOFARABINE
     Indication: Precursor T-lymphoblastic lymphoma/leukaemia
  7. THIOTEPA [Suspect]
     Active Substance: THIOTEPA
     Indication: Acute myeloid leukaemia
     Dosage: UNK
     Route: 065
  8. THIOTEPA [Suspect]
     Active Substance: THIOTEPA
     Indication: Precursor T-lymphoblastic lymphoma/leukaemia
  9. NELARABINE [Suspect]
     Active Substance: NELARABINE
     Indication: Acute myeloid leukaemia
     Dosage: UNK
     Route: 065
  10. NELARABINE [Suspect]
     Active Substance: NELARABINE
     Indication: Precursor T-lymphoblastic lymphoma/leukaemia
  11. VENETOCLAX [Suspect]
     Active Substance: VENETOCLAX
     Indication: Acute myeloid leukaemia
     Dosage: UNK
     Route: 065
  12. VENETOCLAX [Suspect]
     Active Substance: VENETOCLAX
     Indication: Precursor T-lymphoblastic lymphoma/leukaemia
  13. NAVITOCLAX [Suspect]
     Active Substance: NAVITOCLAX
     Indication: Acute myeloid leukaemia
     Dosage: UNK
     Route: 065
  14. NAVITOCLAX [Suspect]
     Active Substance: NAVITOCLAX
     Indication: Precursor T-lymphoblastic lymphoma/leukaemia
  15. DARATUMUMAB [Suspect]
     Active Substance: DARATUMUMAB
     Indication: Acute myeloid leukaemia
     Dosage: UNK
     Route: 065
  16. DARATUMUMAB [Suspect]
     Active Substance: DARATUMUMAB
     Indication: Precursor T-lymphoblastic lymphoma/leukaemia

REACTIONS (2)
  - Drug ineffective [Fatal]
  - Neoplasm progression [Fatal]
